FAERS Safety Report 13674444 (Version 1)
Quarter: 2017Q2

REPORT INFORMATION
  Report Type: Report from Study
  Country: US (occurrence: US)
  Receive Date: 20170621
  Receipt Date: 20170621
  Transmission Date: 20170830
  Serious: Yes (Hospitalization)
  Sender: FDA-Public Use
  Company Number: US-ASTRAZENECA-2017SE63938

PATIENT
  Age: 24886 Day
  Sex: Male

DRUGS (7)
  1. LISINOPRIL-HYDROCHLOROTHIAZIDE [Concomitant]
     Active Substance: HYDROCHLOROTHIAZIDE\LISINOPRIL
     Route: 048
     Dates: start: 20110101
  2. RADIOTHERAPY [Suspect]
     Active Substance: RADIATION THERAPY
     Indication: GLIOBLASTOMA
     Dosage: 2 GY DAILY 5 DAYS PER WEEK FOR A TOTAL OF 60 GY OVER 30 FRACTIONS
     Route: 065
     Dates: start: 20170104, end: 20170216
  3. MELATONIN [Concomitant]
     Active Substance: MELATONIN
     Dosage: 3.0MG AS REQUIRED
     Route: 048
     Dates: start: 20161230
  4. METFORMIN [Concomitant]
     Active Substance: METFORMIN HYDROCHLORIDE
     Dosage: EVERY EVENING
     Route: 048
     Dates: start: 20151201
  5. ATIVAN [Concomitant]
     Active Substance: LORAZEPAM
     Dosage: 0.5MG AS REQUIRED
     Route: 048
     Dates: start: 20161201
  6. FLOMAX [Concomitant]
     Active Substance: TAMSULOSIN HYDROCHLORIDE
     Route: 048
     Dates: start: 20170112
  7. MEDI4736 [Suspect]
     Active Substance: DURVALUMAB
     Indication: GLIOBLASTOMA
     Route: 042
     Dates: start: 20170104, end: 20170509

REACTIONS (1)
  - Tumour pseudoprogression [Recovered/Resolved]

NARRATIVE: CASE EVENT DATE: 20170531
